FAERS Safety Report 10170581 (Version 1)
Quarter: 2014Q2

REPORT INFORMATION
  Report Type: Report from Study
  Country: CL (occurrence: CL)
  Receive Date: 20140513
  Receipt Date: 20140513
  Transmission Date: 20141212
  Serious: Yes (Other)
  Sender: FDA-Public Use
  Company Number: PHHY2014CL057741

PATIENT
  Age: 23 Year
  Sex: Female

DRUGS (1)
  1. LEPONEX [Suspect]
     Dosage: UNK UKN, UNK

REACTIONS (3)
  - International normalised ratio increased [Not Recovered/Not Resolved]
  - Prothrombin time ratio decreased [Not Recovered/Not Resolved]
  - Prothrombin time prolonged [Not Recovered/Not Resolved]
